FAERS Safety Report 25995032 (Version 1)
Quarter: 2025Q4

REPORT INFORMATION
  Report Type: Report from Study
  Country: US (occurrence: US)
  Receive Date: 20251104
  Receipt Date: 20251104
  Transmission Date: 20260118
  Serious: No
  Sender: MALLINCKRODT
  Company Number: US-MALLINCKRODT-MNK202506512

PATIENT
  Age: 70 Year
  Sex: Male

DRUGS (3)
  1. TERLIPRESSIN [Suspect]
     Active Substance: TERLIPRESSIN
     Indication: Hepatorenal syndrome
     Dosage: UNKNOWN
     Dates: start: 20240512, end: 202405
  2. TERLIPRESSIN [Suspect]
     Active Substance: TERLIPRESSIN
     Dosage: UNKNOWN
     Dates: start: 20240516, end: 202405
  3. TERLIPRESSIN [Suspect]
     Active Substance: TERLIPRESSIN
     Dosage: UNKNOWN
     Dates: start: 202405, end: 20240521

REACTIONS (2)
  - Cyanosis [Recovered/Resolved]
  - Abdominal pain [Recovered/Resolved]

NARRATIVE: CASE EVENT DATE: 20240513
